FAERS Safety Report 7239143-6 (Version None)
Quarter: 2011Q1

REPORT INFORMATION
  Report Type: 
  Country: None (occurrence: None)
  Receive Date: 20110121
  Receipt Date: 20110108
  Transmission Date: 20110831
  Serious: Yes (Other)
  Sender: FDA-Public Use
  Company Number: US-B.I. PHARMACEUTICALS,INC./RIDGEFIELD-2011-BP-00612BP

PATIENT
  Sex: Male

DRUGS (4)
  1. PRADAXA [Suspect]
     Indication: ATRIAL FIBRILLATION
     Dosage: 300 MG
     Route: 048
     Dates: start: 20110105
  2. SIMVASTAIN [Concomitant]
     Indication: BLOOD CHOLESTEROL INCREASED
     Dosage: 20 MG
     Route: 048
     Dates: start: 20080101
  3. PINDOLOL [Concomitant]
     Indication: HEART RATE IRREGULAR
     Dosage: 10 MG
     Route: 048
     Dates: start: 20080101
  4. PROPAFERNOL [Concomitant]
     Indication: HEART RATE IRREGULAR
     Dosage: 675 MG
     Route: 048
     Dates: start: 20080101

REACTIONS (2)
  - CHEST PAIN [None]
  - DYSPHAGIA [None]
